FAERS Safety Report 8083659-X (Version None)
Quarter: 2012Q1

REPORT INFORMATION
  Report Type: 
  Country: None (occurrence: None)
  Receive Date: 20120127
  Receipt Date: 20110110
  Transmission Date: 20120608
  Serious: No
  Sender: FDA-Public Use
  Company Number: US-ABBOTT-11P-163-0696719-00

PATIENT
  Sex: Female
  Weight: 77.18 kg

DRUGS (6)
  1. VITAMIN TAB [Concomitant]
     Indication: VITAMIN SUPPLEMENTATION
  2. HUMIRA [Suspect]
     Indication: PSORIATIC ARTHROPATHY
     Dates: start: 20070101
  3. LISINOPRIL [Concomitant]
     Indication: HYPERTENSION
  4. HYDROCHLOROTHIAZIDE [Concomitant]
     Indication: HYPERTENSION
  5. CITALOPRAM [Concomitant]
     Indication: DEPRESSION
  6. METFFORMIN HYDROCHLORIDE [Concomitant]
     Indication: RHEUMATOID ARTHRITIS

REACTIONS (5)
  - COUGH [None]
  - ASTHMA [None]
  - OROPHARYNGEAL PAIN [None]
  - PNEUMONIA [None]
  - SINUSITIS [None]
